FAERS Safety Report 24531908 (Version 3)
Quarter: 2024Q4

REPORT INFORMATION
  Report Type: Spontaneous
  Country: JP (occurrence: JP)
  Receive Date: 20241022
  Receipt Date: 20241118
  Transmission Date: 20250115
  Serious: Yes (Death, Hospitalization, Other)
  Sender: ASTELLAS
  Company Number: JP-ASTELLAS-2024JP002580

PATIENT
  Age: 89 Year
  Sex: Male
  Weight: 51 kg

DRUGS (5)
  1. XOSPATA [Suspect]
     Active Substance: GILTERITINIB
     Indication: Acute myeloid leukaemia refractory
     Route: 048
     Dates: start: 20240328, end: 20240416
  2. LANSOPRAZOLE [Concomitant]
     Active Substance: LANSOPRAZOLE
     Indication: Prophylaxis
     Route: 048
     Dates: start: 20240322, end: 20240329
  3. PREDONINE [Concomitant]
     Active Substance: PREDNISOLONE
     Indication: Acute myeloid leukaemia
     Route: 048
     Dates: start: 20240322
  4. NAFTOPIDIL [Concomitant]
     Active Substance: NAFTOPIDIL
     Indication: Benign prostatic hyperplasia
     Route: 048
     Dates: end: 20240326
  5. FEBUXOSTAT [Concomitant]
     Active Substance: FEBUXOSTAT
     Indication: Prophylaxis
     Route: 048
     Dates: start: 20240320, end: 20240326

REACTIONS (2)
  - Respiratory failure [Fatal]
  - Differentiation syndrome [Fatal]

NARRATIVE: CASE EVENT DATE: 20240415
